FAERS Safety Report 6045763-7 (Version None)
Quarter: 2009Q1

REPORT INFORMATION
  Report Type: 
  Country: None (occurrence: None)
  Receive Date: 20090121
  Receipt Date: 20090115
  Transmission Date: 20090719
  Serious: Yes (Hospitalization)
  Sender: FDA-Public Use
  Company Number: FR-ABBOTT-09P-056-0498313-00

PATIENT
  Sex: Male

DRUGS (4)
  1. NORVIR [Suspect]
     Indication: HIV INFECTION
     Route: 048
     Dates: start: 20060101, end: 20080507
  2. ATAZANAVIR [Suspect]
     Indication: HIV INFECTION
     Route: 048
     Dates: start: 20060101, end: 20080507
  3. EMTRICITABINE/TENOFOVIR DISOPROXIL [Concomitant]
     Indication: HIV INFECTION
     Route: 048
     Dates: start: 20060101
  4. EFAVIRENZ [Concomitant]
     Indication: DRUG USE FOR UNKNOWN INDICATION
     Dates: start: 20080507

REACTIONS (11)
  - ABDOMINAL PAIN [None]
  - ABDOMINAL RIGIDITY [None]
  - BACK PAIN [None]
  - C-REACTIVE PROTEIN INCREASED [None]
  - CALCULUS URETERIC [None]
  - NEPHROLITHIASIS [None]
  - NEUTROPHIL COUNT INCREASED [None]
  - PYELONEPHRITIS ACUTE [None]
  - PYREXIA [None]
  - RENAL COLIC [None]
  - WHITE BLOOD CELL COUNT INCREASED [None]
